FAERS Safety Report 4701533-0 (Version None)
Quarter: 2005Q2

REPORT INFORMATION
  Report Type: 
  Country: None (occurrence: None)
  Receive Date: 20050627
  Receipt Date: 20050623
  Transmission Date: 20051028
  Serious: Yes (Death, Life-Threatening)
  Sender: FDA-Public Use
  Company Number: HQWYE632023JUN05

PATIENT
  Age: 50 Year
  Sex: Male

DRUGS (3)
  1. RAPAMUNE [Suspect]
     Indication: IMMUNOSUPPRESSANT DRUG THERAPY
     Dosage: 4 MG 1X PER 1 DAY, ORAL
     Route: 048
  2. RAPAMUNE [Suspect]
     Indication: RENAL TRANSPLANT
     Dosage: 4 MG 1X PER 1 DAY, ORAL
     Route: 048
  3. PREDNISOLONE [Concomitant]

REACTIONS (6)
  - DISSEMINATED INTRAVASCULAR COAGULATION [None]
  - HYDRONEPHROSIS [None]
  - SEPSIS [None]
  - THERAPY NON-RESPONDER [None]
  - URETERIC STENOSIS [None]
  - URINARY TRACT INFECTION [None]
